FAERS Safety Report 8263402-1 (Version None)
Quarter: 2012Q2

REPORT INFORMATION
  Report Type: 
  Country: None (occurrence: None)
  Receive Date: 20120405
  Receipt Date: 20120313
  Transmission Date: 20120825
  Serious: Yes (Death)
  Sender: FDA-Public Use
  Company Number: BR-US-EMD SERONO, INC.-7095145

PATIENT
  Sex: Female

DRUGS (1)
  1. REBIF [Suspect]
     Indication: RELAPSING-REMITTING MULTIPLE SCLEROSIS
     Dates: start: 20080215, end: 20110909

REACTIONS (5)
  - INJECTION SITE NECROSIS [None]
  - INJECTION SITE INFLAMMATION [None]
  - INJECTION SITE IRRITATION [None]
  - RESPIRATORY TRACT INFECTION [None]
  - INJECTION SITE INFECTION [None]
